FAERS Safety Report 8337115-1 (Version None)
Quarter: 2012Q2

REPORT INFORMATION
  Report Type: 
  Country: None (occurrence: None)
  Receive Date: 20120504
  Receipt Date: 20120427
  Transmission Date: 20120825
  Serious: Yes (Hospitalization, Disabling, Other)
  Sender: FDA-Public Use
  Company Number: PHFR2011GB006826

PATIENT
  Sex: Female
  Weight: 79.7 kg

DRUGS (10)
  1. CLOZARIL [Suspect]
     Dosage: 62.5 MG, UNK
     Route: 048
     Dates: start: 20100803
  2. CLOZARIL [Suspect]
     Indication: PSYCHOTIC DISORDER
     Dosage: 100 MG, DAILY
     Route: 048
     Dates: start: 20100706
  3. RANITIDINE [Concomitant]
     Dosage: 300 MG, QD
     Route: 048
  4. CLOZARIL [Suspect]
     Dosage: 100 MG, UNK
     Route: 048
     Dates: start: 20100923, end: 20111124
  5. NYSTATIN [Concomitant]
     Dosage: 1 ML, TID
     Route: 048
  6. AMLODIPINE [Concomitant]
     Indication: HYPERTENSION
     Dosage: 5 MG, DAILY
     Route: 048
  7. FUROSEMIDE [Concomitant]
     Dosage: 40 MG, BID
     Route: 048
  8. ALBUTEROL [Concomitant]
  9. CLOZARIL [Suspect]
     Dosage: 100 MG, UNK
  10. CARBOCISTEINE [Concomitant]
     Dosage: 375 MG, DAILY
     Route: 048

REACTIONS (10)
  - DEHYDRATION [None]
  - GAIT DISTURBANCE [None]
  - PNEUMONIA [None]
  - RENAL FAILURE [None]
  - GENERAL PHYSICAL HEALTH DETERIORATION [None]
  - DEMENTIA WITH LEWY BODIES [None]
  - URINARY TRACT INFECTION [None]
  - RENAL IMPAIRMENT [None]
  - CARDIAC FAILURE [None]
  - SEDATION [None]
